FAERS Safety Report 14164548 (Version 2)
Quarter: 2018Q3

REPORT INFORMATION
  Report Type: Spontaneous
  Country: US (occurrence: US)
  Receive Date: 20171107
  Receipt Date: 20180927
  Transmission Date: 20181010
  Serious: Yes (Other)
  Sender: FDA-Public Use
  Company Number: US-SHIRE-US201725681

PATIENT

DRUGS (1)
  1. VYVANSE [Suspect]
     Active Substance: LISDEXAMFETAMINE DIMESYLATE
     Indication: ATTENTION DEFICIT/HYPERACTIVITY DISORDER
     Dosage: 20 MG, 1X/DAY:QD
     Route: 065
     Dates: start: 201501, end: 201701

REACTIONS (8)
  - Implantable cardiac monitor insertion [Unknown]
  - Ischaemic stroke [Recovered/Resolved]
  - Emotional distress [Not Recovered/Not Resolved]
  - Atrial fibrillation [Unknown]
  - Anxiety [Not Recovered/Not Resolved]
  - Arrhythmia [Unknown]
  - Pain in extremity [Not Recovered/Not Resolved]
  - Hypoaesthesia [Not Recovered/Not Resolved]

NARRATIVE: CASE EVENT DATE: 20160810
